FAERS Safety Report 5017443-8 (Version None)
Quarter: 2006Q2

REPORT INFORMATION
  Report Type: 
  Country: None (occurrence: None)
  Receive Date: 20060414
  Receipt Date: 20060227
  Transmission Date: 20061013
  Serious: No
  Sender: FDA-Public Use
  Company Number: 2006SP000960

PATIENT
  Age: 53 Year
  Sex: Female
  Weight: 63.5036 kg

DRUGS (4)
  1. LUNESTA [Suspect]
     Indication: INSOMNIA
     Dosage: 2 MG; 1X; ORAL; SEE IMAGE
     Route: 048
     Dates: start: 20060201, end: 20060201
  2. LUNESTA [Suspect]
     Indication: INSOMNIA
     Dosage: 2 MG; 1X; ORAL; SEE IMAGE
     Route: 048
     Dates: start: 20060226, end: 20060226
  3. ESTROGENS [Concomitant]
  4. PROGESTERONE [Concomitant]

REACTIONS (1)
  - DYSGEUSIA [None]
